FAERS Safety Report 12926477 (Version 2)
Quarter: 2017Q1

REPORT INFORMATION
  Report Type: Spontaneous
  Country: CA (occurrence: CA)
  Receive Date: 20161109
  Receipt Date: 20170330
  Transmission Date: 20170428
  Serious: Yes (Other)
  Sender: FDA-Public Use
  Company Number: CA-TEVA-709352ACC

PATIENT
  Age: 71 Year
  Sex: Male

DRUGS (2)
  1. NEVANAC [Concomitant]
     Active Substance: NEPAFENAC
  2. RATIO-PREDNISOLONE [Suspect]
     Active Substance: PREDNISOLONE
     Indication: CATARACT OPERATION
     Dosage: STRENGTH: 1%, 10ML BOTTLE, 1 DROP IN THE LEFT EYE FOUR TIMES
     Route: 047

REACTIONS (6)
  - Visual impairment [Recovered/Resolved]
  - Eye pain [Recovered/Resolved]
  - Eye irritation [Recovered/Resolved]
  - Ocular hyperaemia [Recovered/Resolved]
  - Product quality issue [Unknown]
  - Product substitution issue [Unknown]

NARRATIVE: CASE EVENT DATE: 201610
